FAERS Safety Report 14524656 (Version 1)
Quarter: 2018Q1

REPORT INFORMATION
  Report Type: Spontaneous
  Country: PL (occurrence: PL)
  Receive Date: 20180213
  Receipt Date: 20180213
  Transmission Date: 20180509
  Serious: Yes (Death, Hospitalization)
  Sender: FDA-Public Use
  Company Number: PL-ROCHE-2068419

PATIENT
  Age: 67 Year
  Sex: Male
  Weight: 73 kg

DRUGS (8)
  1. ASPIRINE [Suspect]
     Active Substance: ASPIRIN
     Indication: ARTERIOSCLEROSIS
     Route: 048
     Dates: end: 20180130
  2. LOW MOLECULAR WEIGHT HEPARIN [Suspect]
     Active Substance: UNSPECIFIED INGREDIENT
     Indication: ATRIAL FIBRILLATION
     Route: 065
     Dates: start: 20180128, end: 20180130
  3. PRADAXA [Concomitant]
     Active Substance: DABIGATRAN ETEXILATE MESYLATE
  4. ACTILYSE [Suspect]
     Active Substance: ALTEPLASE
     Indication: PERIPHERAL ISCHAEMIA
     Route: 042
     Dates: start: 20180129
  5. CLOPIDOGREL [Suspect]
     Active Substance: CLOPIDOGREL BISULFATE
     Route: 065
     Dates: end: 20180127
  6. WARFARIN [Concomitant]
     Active Substance: WARFARIN
     Route: 065
     Dates: end: 20180127
  7. CLOPIDOGREL [Suspect]
     Active Substance: CLOPIDOGREL BISULFATE
     Indication: STENT PLACEMENT
     Route: 065
     Dates: start: 20180130
  8. ACARD [Concomitant]
     Active Substance: ASPIRIN
     Route: 065
     Dates: end: 20180127

REACTIONS (5)
  - Brain stem haemorrhage [Fatal]
  - Coma [Not Recovered/Not Resolved]
  - Atrial fibrillation [Unknown]
  - Off label use [Fatal]
  - Intraventricular haemorrhage [Fatal]

NARRATIVE: CASE EVENT DATE: 20180130
